FAERS Safety Report 24547371 (Version 6)
Quarter: 2025Q1

REPORT INFORMATION
  Report Type: Spontaneous
  Country: US (occurrence: US)
  Receive Date: 20241025
  Receipt Date: 20250205
  Transmission Date: 20250409
  Serious: Yes (Other)
  Sender: SANOFI AVENTIS
  Company Number: US-SA-2024SA307689

PATIENT
  Age: 54 Year
  Sex: Female
  Weight: 86.36 kg

DRUGS (6)
  1. DUPIXENT [Suspect]
     Active Substance: DUPILUMAB
     Indication: Dermatitis atopic
     Dosage: 300 MG, QOW
     Route: 058
     Dates: start: 20240826
  2. PROZAC [Concomitant]
     Active Substance: FLUOXETINE HYDROCHLORIDE
  3. PREVACID [Concomitant]
     Active Substance: LANSOPRAZOLE
  4. IBUPROFEN [Concomitant]
     Active Substance: IBUPROFEN
  5. OPZELURA [Concomitant]
     Active Substance: RUXOLITINIB PHOSPHATE
  6. BENADRYL ALLERGY [Concomitant]
     Active Substance: DIPHENHYDRAMINE HYDROCHLORIDE

REACTIONS (15)
  - Autoimmune disorder [Unknown]
  - Pain in extremity [Unknown]
  - Sleep disorder due to a general medical condition [Unknown]
  - Hyperhidrosis [Unknown]
  - Anxiety [Unknown]
  - Neck pain [Unknown]
  - Back pain [Unknown]
  - Headache [Not Recovered/Not Resolved]
  - Rebound atopic dermatitis [Recovering/Resolving]
  - Drug effect less than expected [Unknown]
  - Hypertension [Unknown]
  - Injection site pain [Unknown]
  - Arthralgia [Unknown]
  - Injection site bruising [Unknown]
  - Product dose omission issue [Unknown]

NARRATIVE: CASE EVENT DATE: 20240101
